FAERS Safety Report 15042561 (Version 2)
Quarter: 2018Q3

REPORT INFORMATION
  Report Type: Report from Study
  Country: IT (occurrence: IT)
  Receive Date: 20180621
  Receipt Date: 20180705
  Transmission Date: 20181010
  Serious: Yes (Hospitalization, Other)
  Sender: FDA-Public Use
  Company Number: PHHY2018IT023630

PATIENT
  Age: 52 Year
  Sex: Female

DRUGS (3)
  1. TAFINLAR [Suspect]
     Active Substance: DABRAFENIB MESYLATE
     Indication: METASTATIC MALIGNANT MELANOMA
     Dosage: 2 MG, QD
     Route: 048
     Dates: start: 20171212, end: 20180528
  2. TRAMETINIB [Suspect]
     Active Substance: TRAMETINIB
     Indication: METASTATIC MALIGNANT MELANOMA
     Dosage: 100 OT, QD
     Route: 048
     Dates: start: 20171212, end: 20180528
  3. SOLDESAM [Concomitant]
     Active Substance: DEXAMETHASONE
     Indication: HYPERTENSION
     Dosage: 32 OT, UNK
     Route: 065
     Dates: start: 20171001

REACTIONS (10)
  - Intestinal obstruction [Unknown]
  - Metastatic malignant melanoma [Unknown]
  - Lipase increased [Unknown]
  - Abdominal pain [Unknown]
  - Nausea [Unknown]
  - Malignant neoplasm progression [Unknown]
  - Vomiting [Unknown]
  - Hydronephrosis [Unknown]
  - Blood creatinine increased [Unknown]
  - Pelvic pain [Unknown]

NARRATIVE: CASE EVENT DATE: 20180601
